FAERS Safety Report 19497066 (Version 1)
Quarter: 2021Q3

REPORT INFORMATION
  Report Type: Spontaneous
  Country: US (occurrence: US)
  Receive Date: 20210705
  Receipt Date: 20210705
  Transmission Date: 20211014
  Serious: Yes (Life-Threatening, Hospitalization)
  Sender: FDA-Public Use
  Company Number: None

PATIENT
  Age: 71 Year
  Sex: Male
  Weight: 90.45 kg

DRUGS (10)
  1. REPATHA [Suspect]
     Active Substance: EVOLOCUMAB
     Indication: HYPERCHOLESTEROLAEMIA
     Dosage: ?          OTHER FREQUENCY:Q 2 WEEKS;?
     Route: 058
     Dates: start: 20190701
  2. TRESIBA [Concomitant]
     Active Substance: INSULIN DEGLUDEC
  3. LISINOPRIL. [Concomitant]
     Active Substance: LISINOPRIL
  4. REPATHA [Suspect]
     Active Substance: EVOLOCUMAB
     Indication: CORONARY ARTERY DISEASE
     Dosage: ?          OTHER FREQUENCY:Q 2 WEEKS;?
     Route: 058
     Dates: start: 20190701
  5. CLOPIDOGREL [Concomitant]
     Active Substance: CLOPIDOGREL BISULFATE
  6. NITROSTAT [Concomitant]
     Active Substance: NITROGLYCERIN
  7. METOPROLOL ER SUCCINATE 25MG [Concomitant]
  8. VALSARTAN 160MG [Concomitant]
     Active Substance: VALSARTAN
  9. AMLODIPINE [Concomitant]
     Active Substance: AMLODIPINE BESYLATE
  10. METFORMIN 500MG [Concomitant]
     Active Substance: METFORMIN HYDROCHLORIDE

REACTIONS (4)
  - COVID-19 [None]
  - Device occlusion [None]
  - Acute myocardial infarction [None]
  - Hypoxia [None]

NARRATIVE: CASE EVENT DATE: 20210317
